FAERS Safety Report 10870938 (Version 1)
Quarter: 2015Q1

REPORT INFORMATION
  Report Type: Report from Study
  Country: ES (occurrence: ES)
  Receive Date: 20150226
  Receipt Date: 20150226
  Transmission Date: 20150721
  Serious: Yes (Other)
  Sender: FDA-Public Use
  Company Number: ES-SA-2015SA022105

PATIENT
  Age: 77 Year
  Sex: Female

DRUGS (4)
  1. SOLOSTAR [Concomitant]
     Active Substance: DEVICE
     Dates: start: 201310
  2. EFFICIB [Concomitant]
     Active Substance: METFORMIN HYDROCHLORIDE\SITAGLIPTIN PHOSPHATE
     Indication: TYPE 2 DIABETES MELLITUS
     Dosage: DOSE AND FREQUENCY: 1-0-1
     Route: 048
     Dates: start: 201310
  3. LANTUS SOLOSTAR [Suspect]
     Active Substance: INSULIN GLARGINE
     Indication: TYPE 2 DIABETES MELLITUS
     Route: 058
     Dates: start: 201310
  4. FORXIGA [Concomitant]
     Active Substance: DAPAGLIFLOZIN
     Indication: TYPE 2 DIABETES MELLITUS
     Dosage: DOSE: 0-1-0
     Route: 048
     Dates: start: 201410

REACTIONS (6)
  - Hyperglycaemia [Recovering/Resolving]
  - Fatigue [Recovering/Resolving]
  - Nervousness [Recovering/Resolving]
  - Respiratory tract infection [Unknown]
  - Dry mouth [Recovering/Resolving]
  - Nasopharyngitis [Unknown]

NARRATIVE: CASE EVENT DATE: 20150116
